FAERS Safety Report 9893032 (Version 1)
Quarter: 2014Q1

REPORT INFORMATION
  Report Type: Spontaneous
  Country: US (occurrence: US)
  Receive Date: 20140213
  Receipt Date: 20140213
  Transmission Date: 20141002
  Serious: No
  Sender: FDA-Public Use
  Company Number: US-BIOGENIDEC-2014BI014485

PATIENT
  Sex: Male

DRUGS (1)
  1. AVONEX [Suspect]
     Indication: ACCIDENTAL EXPOSURE TO PRODUCT

REACTIONS (1)
  - Accidental exposure to product [Unknown]
